FAERS Safety Report 9875057 (Version 1)
Quarter: 2014Q1

REPORT INFORMATION
  Report Type: Spontaneous
  Country: US (occurrence: None)
  Receive Date: 20140205
  Receipt Date: 20140205
  Transmission Date: 20141002
  Serious: Yes (Other)
  Sender: FDA-Public Use
  Company Number: None

PATIENT
  Age: 25 Year
  Sex: Female

DRUGS (1)
  1. FLONASE [Suspect]
     Indication: SINUS DISORDER

REACTIONS (3)
  - Nasal dryness [None]
  - Irritability [None]
  - Nasal inflammation [None]
